FAERS Safety Report 6092401-3 (Version None)
Quarter: 2009Q1

REPORT INFORMATION
  Report Type: 
  Country: None (occurrence: None)
  Receive Date: 20090225
  Receipt Date: 20090217
  Transmission Date: 20090719
  Serious: Yes (Hospitalization, Other)
  Sender: FDA-Public Use
  Company Number: PHEH2006US03584

PATIENT
  Sex: Male
  Weight: 157.37 kg

DRUGS (1)
  1. ZOMETA [Suspect]
     Dosage: 4 MG, QMO
     Dates: start: 20040517, end: 20051201

REACTIONS (18)
  - ANAEMIA [None]
  - ANXIETY [None]
  - BONE DEBRIDEMENT [None]
  - BONE DISORDER [None]
  - FISTULA [None]
  - FISTULA DISCHARGE [None]
  - FISTULA REPAIR [None]
  - GENERAL ANAESTHESIA [None]
  - INJURY [None]
  - OSTEOMYELITIS [None]
  - OSTEONECROSIS [None]
  - PAIN [None]
  - PULMONARY EMBOLISM [None]
  - RENAL FAILURE CHRONIC [None]
  - SWELLING [None]
  - TOOTH ABSCESS [None]
  - TOOTH EXTRACTION [None]
  - TOOTH FRACTURE [None]
